FAERS Safety Report 9027960 (Version 1)
Quarter: 2013Q1

REPORT INFORMATION
  Report Type: Spontaneous
  Country: NL (occurrence: NL)
  Receive Date: 20130123
  Receipt Date: 20130123
  Transmission Date: 20140127
  Serious: Yes (Other)
  Sender: FDA-Public Use
  Company Number: NL-AMGEN-NLDSP2013004877

PATIENT
  Age: 60 Year
  Sex: Male

DRUGS (6)
  1. ENBREL [Suspect]
     Indication: RHEUMATOID ARTHRITIS
     Dosage: 50 MG, WEEKLY
     Route: 058
     Dates: start: 20121229
  2. OMEPRAZOL                          /00661201/ [Concomitant]
     Dosage: 10 MG, UNK
  3. PREDNISON [Concomitant]
     Dosage: 12.5 MG, UNK
  4. PARACETAMOL [Concomitant]
     Dosage: 500 MG, UNK
  5. ALENDRONIC ACID [Concomitant]
     Dosage: 10 MG, UNK
  6. CALCICHEW [Concomitant]
     Dosage: 500 MG, UNK

REACTIONS (2)
  - Headache [Unknown]
  - Chest pain [Unknown]
